FAERS Safety Report 6715375-8 (Version None)
Quarter: 2010Q2

REPORT INFORMATION
  Report Type: 
  Country: None (occurrence: None)
  Receive Date: 20100507
  Receipt Date: 20100507
  Transmission Date: 20101027
  Serious: Yes (Other)
  Sender: FDA-Public Use
  Company Number: None

PATIENT
  Age: 6 Month
  Sex: Female
  Weight: 7.0308 kg

DRUGS (2)
  1. CONCENTRATED TYLENOL INFANT DROPS [Suspect]
     Indication: PAIN
     Dosage: .8 ML AS NEEDED PO
     Route: 048
     Dates: start: 20090909, end: 20100430
  2. CONCENTRATED TYLENOL INFANT DROPS [Suspect]
     Indication: PYREXIA
     Dosage: .8 ML AS NEEDED PO
     Route: 048
     Dates: start: 20090909, end: 20100430

REACTIONS (2)
  - PRODUCT QUALITY ISSUE [None]
  - VOMITING [None]
